FAERS Safety Report 9864128 (Version 1)
Quarter: 2014Q1

REPORT INFORMATION
  Report Type: Spontaneous
  Country: US (occurrence: US)
  Receive Date: 20140203
  Receipt Date: 20140203
  Transmission Date: 20141002
  Serious: No
  Sender: FDA-Public Use
  Company Number: US-AMGEN-USASP2014000575

PATIENT
  Age: 51 Year
  Sex: Male

DRUGS (2)
  1. ENBREL [Suspect]
     Indication: PSORIASIS
     Dosage: 50 MG, EVERY 72 TO 96 HOURS
     Route: 065
     Dates: start: 20131201
  2. METHOTREXATE [Concomitant]
     Dosage: 25 MG, QWK (EVERY 5 DAYS)

REACTIONS (1)
  - Injection site erythema [Not Recovered/Not Resolved]
